FAERS Safety Report 7904509 (Version 4)
Quarter: 2012Q4

REPORT INFORMATION
  Report Type: 
  Country: JP (occurrence: JP)
  Receive Date: 20110419
  Receipt Date: 20121126
  Transmission Date: 20130627
  Serious: Yes (Life-Threatening, Other)
  Sender: FDA-Public Use
  Company Number: PHHY2011JP26177

PATIENT
  Age: 57 Year
  Sex: Male

DRUGS (31)
  1. CLOZAPINE [Suspect]
     Indication: SCHIZOPHRENIA, UNDIFFERENTIATED TYPE
     Dosage: 12.5 mg, UNK
     Route: 048
     Dates: start: 20101104, end: 20101104
  2. CLOZAPINE [Suspect]
     Dosage: 25 mg, UNK
     Route: 048
     Dates: start: 20101105, end: 20101107
  3. CLOZAPINE [Suspect]
     Dosage: 50 mg, UNK
     Route: 048
     Dates: start: 20101108, end: 20101111
  4. CLOZAPINE [Suspect]
     Dosage: 75 mg, UNK
     Route: 048
     Dates: start: 20101112, end: 20101114
  5. CLOZAPINE [Suspect]
     Dosage: 100 mg, UNK
     Route: 048
     Dates: start: 20101115, end: 20101117
  6. CLOZAPINE [Suspect]
     Dosage: 125 mg, UNK
     Route: 048
     Dates: start: 20101118, end: 20101125
  7. CLOZAPINE [Suspect]
     Dosage: 150 mg, UNK
     Route: 048
     Dates: start: 20101126, end: 20101128
  8. CLOZAPINE [Suspect]
     Dosage: 175 mg, UNK
     Route: 048
     Dates: start: 20101129, end: 20101202
  9. CLOZAPINE [Suspect]
     Dosage: 200 mg, UNK
     Route: 048
     Dates: start: 20101203, end: 20101220
  10. CLOZAPINE [Suspect]
     Dosage: 150 mg, UNK
     Route: 048
     Dates: start: 20101221, end: 20110103
  11. CLOZAPINE [Suspect]
     Dosage: 200 mg, UNK
     Route: 048
     Dates: start: 20110104, end: 20110107
  12. CLOZAPINE [Suspect]
     Dosage: 300 mg, UNK
     Route: 048
     Dates: start: 20110108, end: 20110114
  13. CLOZAPINE [Suspect]
     Dosage: 350 mg, UNK
     Route: 048
     Dates: start: 20110115, end: 20110203
  14. CLOZAPINE [Suspect]
     Dosage: 400 mg, UNK
     Route: 048
     Dates: start: 20110204, end: 20110210
  15. CLOZAPINE [Suspect]
     Dosage: 450 mg, UNK
     Route: 048
     Dates: start: 20110211, end: 20110224
  16. CLOZAPINE [Suspect]
     Dosage: 500 mg, UNK
     Route: 048
     Dates: start: 20110225, end: 20110324
  17. CLOZAPINE [Suspect]
     Dosage: 600 mg, UNK
     Route: 048
     Dates: start: 20110325, end: 20110329
  18. CHLORPROMAZINE HYDROCHLORIDE [Concomitant]
     Route: 048
  19. LOSIZOPILON [Concomitant]
     Dosage: 300 mg, UNK
     Route: 048
     Dates: start: 20101110
  20. SERENACE [Concomitant]
     Dosage: 30 mg, UNK
     Route: 048
     Dates: start: 20101125
  21. SERENACE [Concomitant]
     Dosage: 20 mg, UNK
     Route: 048
  22. SERENACE [Concomitant]
     Dosage: 5 mg, UNK
     Route: 048
  23. LEVOTOMIN [Concomitant]
     Dosage: 100 mg, UNK
     Route: 048
     Dates: start: 20101125
  24. LEVOTOMIN [Concomitant]
     Dosage: 50 mg, UNK
     Route: 048
  25. LEVOTOMIN [Concomitant]
     Dosage: 25 mg, UNK
     Route: 048
  26. WINTERMIN [Concomitant]
     Dosage: 100 mg, UNK
     Route: 048
     Dates: start: 20101014, end: 20101118
  27. THYRADIN [Concomitant]
     Indication: SCHIZOPHRENIA
     Dosage: 50 ug, UNK
     Route: 048
     Dates: start: 20100916
  28. AMOBAN [Concomitant]
     Indication: SCHIZOPHRENIA
     Dosage: 7.5 mg, UNK
     Route: 048
     Dates: start: 20100415, end: 20101111
  29. FLUNITRAZEPAM [Concomitant]
     Indication: SCHIZOPHRENIA
     Dosage: 2 mg, UNK
     Route: 048
     Dates: start: 20100415
  30. DEPAKENE [Concomitant]
     Indication: SCHIZOPHRENIA
     Dosage: 600 mg, UNK
     Route: 048
     Dates: start: 20100309
  31. LAMICTAL [Concomitant]
     Indication: SCHIZOPHRENIA
     Dosage: 200 mg, UNK
     Route: 048
     Dates: start: 20100902, end: 20101110

REACTIONS (3)
  - Gastrointestinal haemorrhage [Recovered/Resolved]
  - Haematemesis [Unknown]
  - Drug ineffective [Unknown]
